FAERS Safety Report 8886955 (Version 1)
Quarter: 2012Q4

REPORT INFORMATION
  Report Type: 
  Country: US (occurrence: US)
  Receive Date: 20121105
  Receipt Date: 20121105
  Transmission Date: 20130627
  Serious: No
  Sender: FDA-Public Use
  Company Number: US-PFIZER INC-2012269459

PATIENT
  Age: 49 Year
  Sex: Male
  Weight: 68.9 kg

DRUGS (6)
  1. TRIAZOLAM [Suspect]
     Indication: INSOMNIA
     Dosage: 0.5 mg, 1x/day
     Route: 048
  2. TRIAZOLAM [Suspect]
     Dosage: 0.5 mg, 1x/day
  3. NORCO [Concomitant]
     Indication: BACK PAIN
     Dosage: UNK
  4. CARISOPRODOL [Concomitant]
     Indication: BACK PAIN
     Dosage: UNK
  5. CELEBREX [Concomitant]
     Indication: BACK PAIN
     Dosage: UNK
  6. SIMVASTATIN [Concomitant]
     Indication: HIGH CHOLESTEROL
     Dosage: UNK

REACTIONS (1)
  - Drug ineffective [Unknown]
